FAERS Safety Report 11335421 (Version 1)
Quarter: 2015Q3

REPORT INFORMATION
  Report Type: Spontaneous
  Country: US (occurrence: US)
  Receive Date: 20150804
  Receipt Date: 20150804
  Transmission Date: 20151125
  Serious: Yes (Hospitalization)
  Sender: FDA-Public Use
  Company Number: US-BEH-2015052658

PATIENT
  Age: 25 Year
  Sex: Male
  Weight: 81 kg

DRUGS (11)
  1. ACETAMINOPHEN 325 MG [Concomitant]
  2. HEPARIN 5 ML [Concomitant]
  3. PREDNISONE 60 MG [Concomitant]
     Active Substance: PREDNISONE
  4. TYLENOL 650 MG [Concomitant]
  5. METHOTREXATE 40MG [Concomitant]
  6. SODIUM CHLORIDE. [Concomitant]
     Active Substance: SODIUM CHLORIDE
  7. DIPHENHYDRAMINE 25 MG [Concomitant]
  8. FOLIC ACID. [Concomitant]
     Active Substance: FOLIC ACID
  9. COMPLERA [Concomitant]
     Active Substance: EMTRICITABINE\RILPIVIRINE HYDROCHLORIDE\TENOFOVIR DISOPROXIL FUMARATE
  10. PRIVIGEN [Suspect]
     Active Substance: HUMAN IMMUNOGLOBULIN G
     Indication: DERMATOMYOSITIS
     Dosage: AS DIRECTED
     Route: 042
  11. VITAMIN D 1200 UN [Concomitant]

REACTIONS (1)
  - Muscular weakness [Unknown]

NARRATIVE: CASE EVENT DATE: 20150707
